FAERS Safety Report 4407442-9 (Version None)
Quarter: 2004Q3

REPORT INFORMATION
  Report Type: 
  Country: None (occurrence: None)
  Receive Date: 20040721
  Receipt Date: 20040708
  Transmission Date: 20050211
  Serious: Yes (Death, Life-Threatening, Hospitalization, Other)
  Sender: FDA-Public Use
  Company Number: 2004046743

PATIENT
  Age: 72 Year
  Sex: Female

DRUGS (1)
  1. DOXYCYCLINE [Suspect]
     Indication: PROPHYLAXIS
     Dosage: ORAL
     Route: 048

REACTIONS (9)
  - BLOOD CREATINE PHOSPHOKINASE INCREASED [None]
  - BLOOD LACTATE DEHYDROGENASE INCREASED [None]
  - BLOOD PH INCREASED [None]
  - CREPITATIONS [None]
  - DIARRHOEA [None]
  - DISEASE PROGRESSION [None]
  - LUNG INFILTRATION [None]
  - RESPIRATORY ARREST [None]
  - SEVERE ACUTE RESPIRATORY SYNDROME [None]
